FAERS Safety Report 6702898-0 (Version None)
Quarter: 2010Q2

REPORT INFORMATION
  Report Type: 
  Country: None (occurrence: None)
  Receive Date: 20100429
  Receipt Date: 20100420
  Transmission Date: 20101027
  Serious: Yes (Hospitalization)
  Sender: FDA-Public Use
  Company Number: US-NOVOPROD-305375

PATIENT
  Sex: Male
  Weight: 69.841 kg

DRUGS (10)
  1. LEVEMIR [Suspect]
     Indication: TYPE 2 DIABETES MELLITUS
     Dosage: 10 U, QD
     Route: 058
     Dates: start: 20091221
  2. LEVEMIR [Suspect]
     Dosage: 15 IU, QD
     Route: 058
     Dates: start: 20100115, end: 20100218
  3. LEVEMIR [Suspect]
     Dosage: 13 IU, QD
     Route: 058
     Dates: start: 20100222
  4. ACTOS [Suspect]
     Indication: TYPE 2 DIABETES MELLITUS
     Dosage: 15 MG, QD
     Route: 048
     Dates: start: 20091221, end: 20100214
  5. ACTOS [Suspect]
     Dosage: 30 MG, QD
     Route: 048
     Dates: start: 20100215, end: 20100220
  6. METFORMIN [Concomitant]
     Indication: TYPE 2 DIABETES MELLITUS
     Dosage: UNK
     Route: 048
  7. METFORMIN [Concomitant]
     Dosage: 2000 MG, QD
     Route: 048
     Dates: start: 20100222
  8. LEVOTHYROXINE [Concomitant]
     Indication: HYPOTHYROIDISM
     Dosage: UNK
     Dates: start: 20080101
  9. ASPIRIN [Concomitant]
     Indication: PROPHYLAXIS
     Dosage: UNK
     Route: 048
  10. SIMVASTATIN [Concomitant]
     Indication: HYPERLIPIDAEMIA
     Dosage: UNK
     Route: 048

REACTIONS (3)
  - BLOOD GLUCOSE DECREASED [None]
  - BLOOD GLUCOSE INCREASED [None]
  - LOSS OF CONSCIOUSNESS [None]
